FAERS Safety Report 12355039 (Version 1)
Quarter: 2016Q2

REPORT INFORMATION
  Report Type: Spontaneous
  Country: US (occurrence: US)
  Receive Date: 20160511
  Receipt Date: 20160511
  Transmission Date: 20160815
  Serious: No
  Sender: FDA-Public Use
  Company Number: US-ACTAVIS-2015-27430

PATIENT
  Age: 14 Month
  Sex: Male

DRUGS (1)
  1. IBUPROFEN OTC BERRY (AMALLC) [Suspect]
     Active Substance: IBUPROFEN
     Indication: TEETHING
     Dosage: 2.5 ML, UNK
     Route: 048
     Dates: start: 20151203, end: 20151204

REACTIONS (5)
  - Crying [Recovered/Resolved]
  - Screaming [Recovered/Resolved]
  - Irritability [Recovered/Resolved]
  - Unevaluable event [Recovered/Resolved]
  - Abnormal behaviour [Recovered/Resolved]

NARRATIVE: CASE EVENT DATE: 20151203
